FAERS Safety Report 11039107 (Version 2)
Quarter: 2015Q2

REPORT INFORMATION
  Report Type: Spontaneous
  Country: US (occurrence: US)
  Receive Date: 20150416
  Receipt Date: 20150429
  Transmission Date: 20150821
  Serious: Yes (Death, Hospitalization, Other)
  Sender: FDA-Public Use
  Company Number: US-009507513-1504USA015475

PATIENT
  Sex: Male
  Weight: 108.84 kg

DRUGS (1)
  1. JANUMET [Suspect]
     Active Substance: METFORMIN HYDROCHLORIDE\SITAGLIPTIN PHOSPHATE
     Indication: TYPE 2 DIABETES MELLITUS
     Dosage: 50-500MG, BID
     Route: 048
     Dates: start: 20090619, end: 20130622

REACTIONS (32)
  - Spinal osteoarthritis [Unknown]
  - Hepatic neoplasm [Unknown]
  - Arthropathy [Unknown]
  - Calcinosis [Unknown]
  - Inguinal hernia [Unknown]
  - Vascular calcification [Unknown]
  - Hypertension [Unknown]
  - Hyponatraemia [Unknown]
  - Orthostatic hypotension [Unknown]
  - Pancreatic carcinoma [Fatal]
  - Pleural effusion [Unknown]
  - Splenomegaly [Unknown]
  - Metastases to liver [Unknown]
  - Hepatic cirrhosis [Unknown]
  - Renal atrophy [Unknown]
  - Myalgia [Unknown]
  - Coronary artery disease [Unknown]
  - Hypercholesterolaemia [Unknown]
  - Cardiac murmur [Unknown]
  - Drug ineffective [Unknown]
  - Abdominal hernia [Unknown]
  - Pain [Unknown]
  - Gastric varices [Unknown]
  - Prostatic calcification [Unknown]
  - Nephrolithiasis [Unknown]
  - Pallor [Unknown]
  - Diverticulitis [Unknown]
  - Incarcerated umbilical hernia [Unknown]
  - Renal cyst [Unknown]
  - Splenic varices [Unknown]
  - Gastrointestinal disorder [Unknown]
  - Osteoarthritis [Unknown]

NARRATIVE: CASE EVENT DATE: 201301
